FAERS Safety Report 18502305 (Version 1)
Quarter: 2020Q4

REPORT INFORMATION
  Report Type: Other
  Country: US (occurrence: US)
  Receive Date: 20201113
  Receipt Date: 20201113
  Transmission Date: 20210114
  Serious: No
  Sender: FDA-Public Use
  Company Number: US-LEADIANT BIOSCIENCES INC-2019STPI000575

PATIENT
  Age: 9 Year
  Sex: Male

DRUGS (16)
  1. POTASSIUM CHLORIDE. [Concomitant]
     Active Substance: POTASSIUM CHLORIDE
  2. SINGULAIR [Concomitant]
     Active Substance: MONTELUKAST SODIUM
  3. CYPROHEPATADINE [Concomitant]
     Active Substance: CYPROHEPTADINE HYDROCHLORIDE
  4. KETOTIF [Concomitant]
  5. CALCITROL [CALCITRIOL] [Concomitant]
     Active Substance: CALCITRIOL
  6. POTASSIUM [Concomitant]
     Active Substance: POTASSIUM
  7. LEXAPRO [Concomitant]
     Active Substance: ESCITALOPRAM OXALATE
  8. FERROUS SULFATE. [Concomitant]
     Active Substance: FERROUS SULFATE
  9. SERTRALINE [Concomitant]
     Active Substance: SERTRALINE HYDROCHLORIDE
  10. CYSTARAN [Suspect]
     Active Substance: CYSTEAMINE HYDROCHLORIDE
     Indication: CYSTINOSIS
     Dosage: 1 DROP EVERY WAKING HOUR
     Route: 047
     Dates: start: 20151002
  11. FUMARATE DISODIUM [Concomitant]
     Active Substance: DISODIUM FUMARATE
  12. MONTELUKAST [Concomitant]
     Active Substance: MONTELUKAST SODIUM
  13. VITAMIN D3 [Concomitant]
     Active Substance: CHOLECALCIFEROL
  14. ONDANSETRON [Concomitant]
     Active Substance: ONDANSETRON
  15. OMNITROPE [Concomitant]
     Active Substance: SOMATROPIN
  16. PROCYSBI [Concomitant]
     Active Substance: CYSTEAMINE BITARTRATE

REACTIONS (1)
  - Conjunctivitis [Not Recovered/Not Resolved]

NARRATIVE: CASE EVENT DATE: 20191112
